FAERS Safety Report 8427858-3 (Version None)
Quarter: 2012Q2

REPORT INFORMATION
  Report Type: 
  Country: None (occurrence: None)
  Receive Date: 20120611
  Receipt Date: 20120530
  Transmission Date: 20120825
  Serious: Yes (Hospitalization)
  Sender: FDA-Public Use
  Company Number: FR-FRI-1000031168

PATIENT
  Sex: Female
  Weight: 54 kg

DRUGS (6)
  1. ESCITALOPRAM [Suspect]
     Dosage: 20 MG
     Route: 048
     Dates: start: 20120229, end: 20120323
  2. ROCEPHIN [Concomitant]
     Indication: URINARY TRACT INFECTION
     Route: 058
     Dates: start: 20120305, end: 20120323
  3. AMITRIPTYLINE HCL [Concomitant]
  4. CLONAZEPAM [Concomitant]
  5. TEGRETOL [Concomitant]
  6. TRAMADOL HCL [Concomitant]

REACTIONS (1)
  - TOXIC ENCEPHALOPATHY [None]
